FAERS Safety Report 7771673-0 (Version None)
Quarter: 2011Q3

REPORT INFORMATION
  Report Type: 
  Country: None (occurrence: None)
  Receive Date: 20110922
  Receipt Date: 20110218
  Transmission Date: 20111222
  Serious: No
  Sender: FDA-Public Use
  Company Number: US-ASTRAZENECA-2011SE09762

PATIENT
  Sex: Male

DRUGS (4)
  1. CELEXA [Concomitant]
  2. SEROQUEL [Suspect]
     Indication: DEPRESSION
     Route: 048
  3. OXAZEPAM [Concomitant]
  4. WELLBUTRIN [Concomitant]

REACTIONS (6)
  - PAIN [None]
  - STRESS [None]
  - DEPRESSION [None]
  - MULTIPLE INJURIES [None]
  - ANXIETY [None]
  - ACTIVITIES OF DAILY LIVING IMPAIRED [None]
